FAERS Safety Report 6972766-8 (Version None)
Quarter: 2010Q3

REPORT INFORMATION
  Report Type: 
  Country: None (occurrence: None)
  Receive Date: 20100909
  Receipt Date: 20100831
  Transmission Date: 20110219
  Serious: Yes (Life-Threatening)
  Sender: FDA-Public Use
  Company Number: US-JNJFOC-20100902281

PATIENT
  Age: 24 Month
  Sex: Male

DRUGS (1)
  1. SODIUM/POTASSIUM PHOSPHATE [Suspect]
     Indication: PRODUCT USED FOR UNKNOWN INDICATION
     Route: 054

REACTIONS (3)
  - COMA [None]
  - HYPERPHOSPHATAEMIA [None]
  - HYPOCALCAEMIA [None]
